FAERS Safety Report 16520154 (Version 1)
Quarter: 2019Q3

REPORT INFORMATION
  Report Type: Spontaneous
  Country: US (occurrence: US)
  Receive Date: 20190702
  Receipt Date: 20190702
  Transmission Date: 20191004
  Serious: No
  Sender: FDA-Public Use
  Company Number: US-TARO-2018TAR00456

PATIENT
  Age: 77 Year
  Sex: Female

DRUGS (3)
  1. CLOTRIMAZOLE/BETAMETHASONE DIPROPIONATE CREAM USP 1%/0.05% [Suspect]
     Active Substance: BETAMETHASONE DIPROPIONATE\CLOTRIMAZOLE
     Indication: VULVAL OEDEMA
     Dosage: APPLY A THIN LAYER, 2X/DAY
     Route: 067
     Dates: start: 20180604, end: 20180606
  2. CLOTRIMAZOLE/BETAMETHASONE DIPROPIONATE CREAM USP 1%/0.05% [Suspect]
     Active Substance: BETAMETHASONE DIPROPIONATE\CLOTRIMAZOLE
     Indication: FUNGAL INFECTION
  3. HYDROCORTISONE. [Concomitant]
     Active Substance: HYDROCORTISONE

REACTIONS (2)
  - Burning sensation [Not Recovered/Not Resolved]
  - Incorrect route of product administration [Recovered/Resolved]

NARRATIVE: CASE EVENT DATE: 201806
